FAERS Safety Report 4715478-3 (Version None)
Quarter: 2005Q3

REPORT INFORMATION
  Report Type: 
  Country: None (occurrence: None)
  Receive Date: 20050713
  Receipt Date: 20050708
  Transmission Date: 20060218
  Serious: Yes (Death, Life-Threatening, Hospitalization, Other)
  Sender: FDA-Public Use
  Company Number: KII-2005-0017407

PATIENT
  Age: 13 Year
  Sex: Female

DRUGS (1)
  1. MORPHINE SULFATE [Suspect]
     Indication: DRUG USE FOR UNKNOWN INDICATION
     Dosage: SEE TEXT, ORAL
     Route: 048

REACTIONS (17)
  - ACIDOSIS [None]
  - ALANINE AMINOTRANSFERASE INCREASED [None]
  - ASPARTATE AMINOTRANSFERASE INCREASED [None]
  - ASPIRATION [None]
  - BODY TEMPERATURE INCREASED [None]
  - CARDIO-RESPIRATORY ARREST [None]
  - COMA [None]
  - DRUG ABUSER [None]
  - DRUG SCREEN POSITIVE [None]
  - HEADACHE [None]
  - INTENTIONAL MISUSE [None]
  - LUNG INFILTRATION [None]
  - MYDRIASIS [None]
  - OEDEMA [None]
  - OVERDOSE [None]
  - PUPIL FIXED [None]
  - SINUS TACHYCARDIA [None]
